FAERS Safety Report 18042763 (Version 12)
Quarter: 2021Q4

REPORT INFORMATION
  Report Type: Spontaneous
  Country: ES (occurrence: ES)
  Receive Date: 20200720
  Receipt Date: 20211209
  Transmission Date: 20220303
  Serious: Yes (Life-Threatening, Hospitalization, Other)
  Sender: FDA-Public Use
  Company Number: NVSC2020ES200792

PATIENT
  Age: 66 Year
  Sex: Male

DRUGS (10)
  1. DULOXETINE [Interacting]
     Active Substance: DULOXETINE
     Indication: Bipolar disorder
     Dosage: 120 MG, QD
     Route: 048
  2. DULOXETINE [Interacting]
     Active Substance: DULOXETINE
     Indication: Cervical spinal stenosis
  3. HYDROXYCHLOROQUINE [Suspect]
     Active Substance: HYDROXYCHLOROQUINE
     Indication: COVID-19 treatment
     Dosage: 400 MG, QD
     Route: 048
  4. HYDROXYCHLOROQUINE [Suspect]
     Active Substance: HYDROXYCHLOROQUINE
     Indication: COVID-19
     Dosage: 200 MG, Q12H
     Route: 065
  5. LOPINAVIR\RITONAVIR [Interacting]
     Active Substance: LOPINAVIR\RITONAVIR
     Indication: COVID-19 treatment
     Dosage: 2 DF, QD
     Route: 048
  6. LOPINAVIR\RITONAVIR [Interacting]
     Active Substance: LOPINAVIR\RITONAVIR
     Indication: COVID-19
     Dosage: 400 MG/100 MG, BID (Q12H)
     Route: 065
  7. HALOPERIDOL [Interacting]
     Active Substance: HALOPERIDOL
     Indication: Delirium
     Dosage: 2 MG, QD
     Route: 048
  8. HALOPERIDOL [Interacting]
     Active Substance: HALOPERIDOL
     Indication: Bipolar disorder
     Dosage: 1 MG TWICE DAILY
     Route: 065
  9. HALOPERIDOL [Interacting]
     Active Substance: HALOPERIDOL
     Dosage: 1 UG, BID
     Route: 065
  10. LITHIUM [Interacting]
     Active Substance: LITHIUM
     Indication: Bipolar disorder
     Dosage: 800 MG, QD
     Route: 048

REACTIONS (17)
  - Encephalopathy [Recovered/Resolved]
  - Blood pressure increased [Recovered/Resolved]
  - Tachycardia [Recovered/Resolved]
  - Urinary retention [Recovered/Resolved]
  - Hyperreflexia [Recovered/Resolved]
  - Hyperhidrosis [Recovered/Resolved]
  - Myoclonus [Recovered/Resolved]
  - Clonus [Recovered/Resolved]
  - Depressed level of consciousness [Recovering/Resolving]
  - Delirium [Recovering/Resolving]
  - Hypertension [Recovering/Resolving]
  - Blood creatine phosphokinase increased [Recovering/Resolving]
  - Serotonin syndrome [Recovered/Resolved]
  - Speech sound disorder [Recovering/Resolving]
  - Blood creatinine increased [Recovered/Resolved]
  - Drug interaction [Unknown]
  - Off label use [Unknown]
